FAERS Safety Report 18530173 (Version 1)
Quarter: 2020Q4

REPORT INFORMATION
  Report Type: Spontaneous
  Country: US (occurrence: US)
  Receive Date: 20201120
  Receipt Date: 20201120
  Transmission Date: 20210114
  Serious: Yes (Death, Other)
  Sender: FDA-Public Use
  Company Number: US-FRESENIUS KABI-FK202012302

PATIENT
  Sex: Male

DRUGS (1)
  1. DILAUDID [Suspect]
     Active Substance: HYDROMORPHONE HYDROCHLORIDE
     Indication: EUPHORIC MOOD
     Dosage: UNKNOWN

REACTIONS (3)
  - Intentional product use issue [Unknown]
  - Hepatic failure [Fatal]
  - Hepatic cirrhosis [Fatal]
